FAERS Safety Report 11292070 (Version 1)
Quarter: 2015Q3

REPORT INFORMATION
  Report Type: Spontaneous
  Country: US (occurrence: None)
  Receive Date: 20150721
  Receipt Date: 20150721
  Transmission Date: 20151125
  Serious: Yes (Hospitalization)
  Sender: FDA-Public Use
  Company Number: None

PATIENT
  Age: 63 Year
  Sex: Male

DRUGS (1)
  1. DOCETAXEL. [Suspect]
     Active Substance: DOCETAXEL
     Indication: NEOPLASM MALIGNANT
     Dosage: 115 MG, OTHER
     Route: 042
     Dates: start: 20100115, end: 20100205

REACTIONS (5)
  - Dyspnoea [None]
  - Infusion related reaction [None]
  - Dizziness [None]
  - Chest discomfort [None]
  - Rash [None]

NARRATIVE: CASE EVENT DATE: 20100205
